FAERS Safety Report 5040755-9 (Version None)
Quarter: 2006Q3

REPORT INFORMATION
  Report Type: 
  Country: None (occurrence: None)
  Receive Date: 20060703
  Receipt Date: 20060621
  Transmission Date: 20061208
  Serious: Yes (Hospitalization, Disabling)
  Sender: FDA-Public Use
  Company Number: US-RB-3464-2006

PATIENT
  Sex: Male
  Weight: 63.56 kg

DRUGS (3)
  1. SUBOXONE [Suspect]
     Indication: DRUG DEPENDENCE
     Route: 060
     Dates: start: 20060615, end: 20060616
  2. SUBOXONE [Suspect]
     Route: 060
     Dates: start: 20060617, end: 20060617
  3. SUBOXONE [Suspect]
     Route: 060
     Dates: start: 20060618, end: 20060618

REACTIONS (8)
  - APRAXIA [None]
  - COORDINATION ABNORMAL [None]
  - DEHYDRATION [None]
  - DYSARTHRIA [None]
  - ENCEPHALOPATHY [None]
  - HYPERHIDROSIS [None]
  - INCOHERENT [None]
  - LETHARGY [None]
